FAERS Safety Report 16576960 (Version 1)
Quarter: 2019Q3

REPORT INFORMATION
  Report Type: Spontaneous
  Country: DE (occurrence: DE)
  Receive Date: 20190716
  Receipt Date: 20190716
  Transmission Date: 20191004
  Serious: Yes (Hospitalization)
  Sender: FDA-Public Use
  Company Number: DE-SAMSUNG BIOEPIS-SB-2017-01753

PATIENT
  Sex: Female

DRUGS (1)
  1. BENEPALI [Suspect]
     Active Substance: ETANERCEPT
     Indication: RHEUMATOID ARTHRITIS
     Dosage: DAILY DOSE: 50 MG MILLIGRAM(S) EVERY WEEK
     Route: 058
     Dates: start: 20161212

REACTIONS (11)
  - Vomiting [Not Recovered/Not Resolved]
  - Incorrect dose administered [Recovered/Resolved]
  - Headache [Not Recovered/Not Resolved]
  - Infection [Unknown]
  - Underweight [Not Recovered/Not Resolved]
  - Rash erythematous [Unknown]
  - Drug intolerance [Not Recovered/Not Resolved]
  - Hospitalisation [Unknown]
  - Pruritus [Unknown]
  - Nausea [Not Recovered/Not Resolved]
  - Malaise [Not Recovered/Not Resolved]
